FAERS Safety Report 11485965 (Version 1)
Quarter: 2015Q3

REPORT INFORMATION
  Report Type: Report from Study
  Country: CN (occurrence: CN)
  Receive Date: 20150910
  Receipt Date: 20150910
  Transmission Date: 20151125
  Serious: Yes (Other)
  Sender: FDA-Public Use
  Company Number: CN-ROCHE-1631065

PATIENT

DRUGS (2)
  1. OXALIPLATIN. [Suspect]
     Active Substance: OXALIPLATIN
     Indication: GASTROINTESTINAL CARCINOMA
     Dosage: 130 MG/M2.DL
     Route: 065
  2. CAPECITABINE. [Suspect]
     Active Substance: CAPECITABINE
     Indication: GASTROINTESTINAL CARCINOMA
     Dosage: DAYS 1-14, EVERY 21 DAYS
     Route: 048

REACTIONS (9)
  - Liver injury [Unknown]
  - Aspartate aminotransferase increased [Recovering/Resolving]
  - Bone marrow failure [Unknown]
  - Alanine aminotransferase increased [Recovering/Resolving]
  - Hypocarnitinaemia [Unknown]
  - Diarrhoea [Unknown]
  - Nausea [Unknown]
  - Decreased appetite [Unknown]
  - Vomiting [Unknown]
